FAERS Safety Report 6177436-4 (Version None)
Quarter: 2009Q2

REPORT INFORMATION
  Report Type: 
  Country: None (occurrence: None)
  Receive Date: 20090504
  Receipt Date: 20090422
  Transmission Date: 20091009
  Serious: Yes (Hospitalization)
  Sender: FDA-Public Use
  Company Number: US-BAYER-200919090NA

PATIENT
  Age: 47 Year
  Sex: Female

DRUGS (3)
  1. CAMPATH [Suspect]
     Indication: STEM CELL TRANSPLANT
     Dosage: TOTAL DAILY DOSE: 20 MG
     Route: 042
     Dates: start: 20090414, end: 20090414
  2. CLOFARABINE [Suspect]
     Indication: STEM CELL TRANSPLANT
     Dosage: TOTAL DAILY DOSE: 54 MG
     Route: 042
     Dates: start: 20090414, end: 20090418
  3. MELPHALAN [Suspect]
     Indication: STEM CELL TRANSPLANT

REACTIONS (1)
  - CONVULSION [None]
